FAERS Safety Report 24156455 (Version 1)
Quarter: 2024Q3

REPORT INFORMATION
  Report Type: Spontaneous
  Country: CN (occurrence: CN)
  Receive Date: 20240731
  Receipt Date: 20240731
  Transmission Date: 20241017
  Serious: Yes (Hospitalization)
  Sender: PFIZER
  Company Number: CN-PFIZER INC-PV202400097506

PATIENT
  Age: 4 Year
  Sex: Female
  Weight: 14.3 kg

DRUGS (4)
  1. METHOTREXATE SODIUM [Suspect]
     Active Substance: METHOTREXATE SODIUM
     Indication: Chemotherapy
     Dosage: 315 MG, 1X/DAY
     Route: 041
     Dates: start: 20240613, end: 20240613
  2. CYTARABINE [Suspect]
     Active Substance: CYTARABINE
     Indication: Chemotherapy
     Dosage: 30 MG, 1X/DAY
     Route: 037
     Dates: start: 20240613, end: 20240613
  3. DASATINIB [Suspect]
     Active Substance: DASATINIB
     Indication: Chemotherapy
     Dosage: 50 MG, 1X/DAY
     Route: 048
     Dates: start: 20240613, end: 20240622
  4. DASATINIB [Suspect]
     Active Substance: DASATINIB
     Indication: Neoplasm malignant

REACTIONS (2)
  - Drug-induced liver injury [Recovering/Resolving]
  - Myelosuppression [Recovering/Resolving]

NARRATIVE: CASE EVENT DATE: 20240622
